FAERS Safety Report 13922624 (Version 1)
Quarter: 2017Q3

REPORT INFORMATION
  Report Type: Spontaneous
  Country: US (occurrence: US)
  Receive Date: 20170830
  Receipt Date: 20170830
  Transmission Date: 20171127
  Serious: Yes (Other)
  Sender: FDA-Public Use
  Company Number: US-PFIZER INC-2017373297

PATIENT
  Age: 65 Year
  Sex: Male
  Weight: 109 kg

DRUGS (2)
  1. LYRICA [Suspect]
     Active Substance: PREGABALIN
     Indication: NEURALGIA
     Dosage: 75 MG, 2X/DAY (IN THE MORNING AND AT NIGHT)
  2. LYRICA [Suspect]
     Active Substance: PREGABALIN
     Indication: HEAD INJURY

REACTIONS (2)
  - Retinal detachment [Recovering/Resolving]
  - Thrombosis [Unknown]
